FAERS Safety Report 9808127 (Version 1)
Quarter: 2014Q1

REPORT INFORMATION
  Report Type: Spontaneous
  Country: US (occurrence: US)
  Receive Date: 20140110
  Receipt Date: 20140110
  Transmission Date: 20141002
  Serious: No
  Sender: FDA-Public Use
  Company Number: US-009507513-1401USA001796

PATIENT
  Age: 63 Year
  Sex: Female

DRUGS (1)
  1. INTRONA [Suspect]
     Dosage: UNK
     Dates: start: 201312, end: 201312

REACTIONS (3)
  - Oropharyngeal pain [Unknown]
  - Back pain [Unknown]
  - Vomiting [Unknown]
